FAERS Safety Report 21179132 (Version 1)
Quarter: 2022Q3

REPORT INFORMATION
  Report Type: Spontaneous
  Country: US (occurrence: None)
  Receive Date: 20220805
  Receipt Date: 20220805
  Transmission Date: 20221027
  Serious: Yes (Hospitalization)
  Sender: FDA-Public Use
  Company Number: None

PATIENT
  Age: 76 Year
  Sex: Male

DRUGS (1)
  1. TESTOPEL [Suspect]
     Active Substance: TESTOSTERONE
     Indication: Hypogonadism male
     Dosage: OTHER FREQUENCY : EVERY 3 MONTHS;?IMPLANT 16 PELLETS UNDER THE SKIN (SUBCUTANEOUS INJECTION) EVERY 3
     Route: 058
     Dates: start: 20180315

REACTIONS (2)
  - Pneumonia [None]
  - Chronic obstructive pulmonary disease [None]

NARRATIVE: CASE EVENT DATE: 20220612
